FAERS Safety Report 4850436-X (Version None)
Quarter: 2005Q4

REPORT INFORMATION
  Report Type: 
  Country: None (occurrence: None)
  Receive Date: 20051123
  Receipt Date: 20051019
  Transmission Date: 20060501
  Serious: No
  Sender: FDA-Public Use
  Company Number: TPA2005A01297

PATIENT
  Age: 55 Year
  Sex: Male
  Weight: 113.3993 kg

DRUGS (1)
  1. ROZEREM [Suspect]
     Indication: INSOMNIA
     Dosage: 8 MG, QHS, PER ORAL
     Route: 048
     Dates: start: 20051018

REACTIONS (1)
  - INITIAL INSOMNIA [None]
